FAERS Safety Report 24709494 (Version 1)
Quarter: 2024Q4

REPORT INFORMATION
  Report Type: Spontaneous
  Country: AU (occurrence: AU)
  Receive Date: 20241209
  Receipt Date: 20241209
  Transmission Date: 20250115
  Serious: Yes (Death, Hospitalization, Other)
  Sender: JOHNSON AND JOHNSON
  Company Number: AU-KENVUE-20241200420

PATIENT

DRUGS (1)
  1. ACETAMINOPHEN [Suspect]
     Active Substance: ACETAMINOPHEN
     Indication: Product used for unknown indication
     Route: 065

REACTIONS (7)
  - Overdose [Fatal]
  - Acute hepatic failure [Fatal]
  - Hyperammonaemia [Fatal]
  - Multiple organ dysfunction syndrome [Fatal]
  - Brain oedema [Fatal]
  - Embolic stroke [Fatal]
  - Cerebral haemorrhage [Fatal]
